FAERS Safety Report 10022079 (Version 1)
Quarter: 2014Q1

REPORT INFORMATION
  Report Type: Spontaneous
  Country: US (occurrence: None)
  Receive Date: 20140318
  Receipt Date: 20140318
  Transmission Date: 20141002
  Serious: Yes (Hospitalization)
  Sender: FDA-Public Use
  Company Number: None

PATIENT
  Age: 57 Year
  Sex: Male
  Weight: 55 kg

DRUGS (1)
  1. FLUOROURACIL [Suspect]
     Indication: HYPERTENSION
     Route: 042
     Dates: start: 20140110, end: 20140303

REACTIONS (4)
  - Mental status changes [None]
  - Diarrhoea [None]
  - Renal failure [None]
  - Dialysis [None]
